FAERS Safety Report 16667683 (Version 2)
Quarter: 2019Q3

REPORT INFORMATION
  Report Type: Spontaneous
  Country: BE (occurrence: BE)
  Receive Date: 20190805
  Receipt Date: 20190823
  Transmission Date: 20191004
  Serious: Yes (Other)
  Sender: FDA-Public Use
  Company Number: BE-PFIZER INC-2019329553

PATIENT
  Age: 68 Year
  Sex: Male
  Weight: 78 kg

DRUGS (9)
  1. PANTOMED [PANTOPRAZOLE SODIUM SESQUIHYDRATE] [Concomitant]
     Active Substance: PANTOPRAZOLE SODIUM
     Indication: GASTRIC DISORDER
     Dosage: 1 DF, 1X/DAY
     Route: 048
     Dates: start: 2000
  2. CELLCEPT [Concomitant]
     Active Substance: MYCOPHENOLATE MOFETIL\MYCOPHENOLATE MOFETIL HYDROCHLORIDE
     Indication: PROPHYLAXIS AGAINST TRANSPLANT REJECTION
     Dosage: 2 DF, 1X/DAY
     Route: 048
     Dates: start: 201404
  3. ADVAGRAF [Concomitant]
     Active Substance: TACROLIMUS
     Indication: PROPHYLAXIS AGAINST TRANSPLANT REJECTION
     Dosage: 1 DF, 1X/DAY
     Route: 048
     Dates: start: 201404
  4. VFEND [Suspect]
     Active Substance: VORICONAZOLE
     Indication: BRONCHOPULMONARY ASPERGILLOSIS
     Dosage: 2 DF, 1X/DAY
     Route: 048
     Dates: start: 201903, end: 20190702
  5. ZYPREXA [Concomitant]
     Active Substance: OLANZAPINE
     Indication: MENTAL DISORDER
     Dosage: 0.75 DF, 1X/DAY (1/4 IN THE MORNING, 1/2 IN THE EVENING)
     Route: 048
     Dates: start: 1983
  6. LIPITOR [Concomitant]
     Active Substance: ATORVASTATIN CALCIUM
     Indication: HYPERCHOLESTEROLAEMIA
     Dosage: 1 DF, 1X/DAY
     Route: 048
     Dates: start: 1988
  7. XANAX [Concomitant]
     Active Substance: ALPRAZOLAM
     Dosage: 1 DF, 1X/DAY
     Route: 048
     Dates: start: 1983
  8. ASAFLOW [Concomitant]
     Active Substance: ASPIRIN
     Indication: CARDIOVASCULAR EVENT PROPHYLAXIS
     Dosage: 1 DF, 1X/DAY
     Route: 048
     Dates: start: 1988
  9. PROZAC [Concomitant]
     Active Substance: FLUOXETINE HYDROCHLORIDE
     Indication: DEPRESSION
     Dosage: 1 DF, 1X/DAY
     Route: 048
     Dates: start: 1983

REACTIONS (9)
  - Lacrimation increased [Recovering/Resolving]
  - Dry skin [Recovering/Resolving]
  - Eye burns [Recovering/Resolving]
  - Mucosal disorder [Recovering/Resolving]
  - Ocular hyperaemia [Recovering/Resolving]
  - Eyelid ptosis [Recovering/Resolving]
  - Eye pruritus [Recovering/Resolving]
  - Photophobia [Recovering/Resolving]
  - Burns second degree [Recovering/Resolving]

NARRATIVE: CASE EVENT DATE: 20190401
